FAERS Safety Report 17702532 (Version 2)
Quarter: 2020Q2

REPORT INFORMATION
  Report Type: Report from Study
  Country: US (occurrence: US)
  Receive Date: 20200423
  Receipt Date: 20200625
  Transmission Date: 20200714
  Serious: Yes (Death, Hospitalization)
  Sender: FDA-Public Use
  Company Number: US-EISAI MEDICAL RESEARCH-EC-2019-056451

PATIENT
  Age: 58 Year
  Sex: Male
  Weight: 67 kg

DRUGS (10)
  1. PROCHLORPERAZINE MALEA [Concomitant]
  2. CARAFATE [Concomitant]
     Active Substance: SUCRALFATE
  3. LENVIMA [Suspect]
     Active Substance: LENVATINIB
     Indication: HEPATOCELLULAR CARCINOMA
     Route: 048
     Dates: start: 20190506, end: 2019
  4. LENVIMA [Suspect]
     Active Substance: LENVATINIB
     Route: 048
     Dates: start: 201911, end: 202004
  5. LENVIMA [Suspect]
     Active Substance: LENVATINIB
     Route: 048
     Dates: start: 202004, end: 2020
  6. OMEPRAZOLE. [Concomitant]
     Active Substance: OMEPRAZOLE
  7. TRAMADOL. [Concomitant]
     Active Substance: TRAMADOL
  8. ONDANSETRON [Concomitant]
     Active Substance: ONDANSETRON
  9. PANTOPRAZOLE [Concomitant]
     Active Substance: PANTOPRAZOLE
  10. SUCRALFATE. [Concomitant]
     Active Substance: SUCRALFATE

REACTIONS (11)
  - Vomiting [Unknown]
  - Pain [Unknown]
  - Abdominal pain upper [Unknown]
  - Death [Fatal]
  - Ascites [Unknown]
  - Abdominal discomfort [Not Recovered/Not Resolved]
  - Nausea [Unknown]
  - Bone pain [Unknown]
  - Dry skin [Not Recovered/Not Resolved]
  - Fatigue [Unknown]
  - Blood pressure increased [Unknown]

NARRATIVE: CASE EVENT DATE: 2019
